FAERS Safety Report 5822190-6 (Version None)
Quarter: 2008Q3

REPORT INFORMATION
  Report Type: 
  Country: None (occurrence: None)
  Receive Date: 20080721
  Receipt Date: 20080703
  Transmission Date: 20090109
  Serious: Yes (Life-Threatening, Hospitalization)
  Sender: FDA-Public Use
  Company Number: DSU-2008-01011

PATIENT
  Age: 75 Year
  Sex: Female
  Weight: 62 kg

DRUGS (7)
  1. OLMETEC PLUS (HYDROCHLOROTHIAZIDE, OLMESARTAN MEDOXOMIL) (TABLET) (HYD [Suspect]
     Indication: ESSENTIAL HYPERTENSION
     Dosage: 40/25 MG (QD), PER ORAL
     Route: 048
     Dates: start: 20080129, end: 20080207
  2. ASTRIX (ACETYLSALICYLIC ACID) (100 MILLIGRAM, CAPSULE) (ACETYLSALICYLI [Concomitant]
  3. NORVASC [Concomitant]
  4. OMEPRAZOLE (OMEPRAZOLE) (20 MILLIGRAM) (OMEPRAZOLE) [Concomitant]
  5. SPIRIVA (TIOTROPIUM BROMIDE) (TIOTROPIUM BROMIDE) [Concomitant]
  6. SYMBICORT TURBUHALER (FORMOTEROL FUMARATE, BUDESONIDE) (FORMOTEROL FUM [Concomitant]
  7. COVERSYL (PERINDOPRIL) (10 MILLIGRAM) (PERINDOPRIL) [Concomitant]

REACTIONS (7)
  - ATAXIA [None]
  - CONFUSIONAL STATE [None]
  - DEHYDRATION [None]
  - DIZZINESS [None]
  - DYSARTHRIA [None]
  - HYPONATRAEMIA [None]
  - VOMITING [None]
